FAERS Safety Report 4549769-6 (Version None)
Quarter: 2005Q1

REPORT INFORMATION
  Report Type: 
  Country: None (occurrence: None)
  Receive Date: 20050111
  Receipt Date: 20050103
  Transmission Date: 20050727
  Serious: Yes (Hospitalization)
  Sender: FDA-Public Use
  Company Number: IT-MERCK-0501ITA00004

PATIENT
  Age: 73 Year
  Sex: Male

DRUGS (1)
  1. ZOCOR [Suspect]
     Indication: HYPERCHOLESTEROLAEMIA
     Route: 048
     Dates: start: 20000101, end: 20041213

REACTIONS (4)
  - CHEST PAIN [None]
  - MYALGIA [None]
  - RENAL FAILURE [None]
  - RHABDOMYOLYSIS [None]
